FAERS Safety Report 5520947-2 (Version None)
Quarter: 2007Q4

REPORT INFORMATION
  Report Type: 
  Country: None (occurrence: None)
  Receive Date: 20071115
  Receipt Date: 20071106
  Transmission Date: 20080405
  Serious: Yes (Other)
  Sender: FDA-Public Use
  Company Number: 17777

PATIENT
  Age: 4 Year

DRUGS (5)
  1. CARBOPLATIN [Suspect]
     Indication: RETINOBLASTOMA
  2. CARBOPLATIN [Suspect]
     Indication: RETINOBLASTOMA
  3. VINCRISTINE [Suspect]
     Indication: RETINOBLASTOMA
  4. ETOPOSIDE [Suspect]
     Indication: RETINOBLASTOMA
  5. RADIOTHERAPY [Suspect]
     Indication: RETINOBLASTOMA

REACTIONS (4)
  - CONJUNCTIVAL MELANOMA [None]
  - METASTASIS [None]
  - RECURRENT CANCER [None]
  - RETINOBLASTOMA UNILATERAL [None]
